FAERS Safety Report 23243440 (Version 1)
Quarter: 2023Q4

REPORT INFORMATION
  Report Type: Spontaneous
  Country: US (occurrence: US)
  Receive Date: 20231130
  Receipt Date: 20231130
  Transmission Date: 20240110
  Serious: Yes (Other)
  Sender: FDA-Public Use
  Company Number: US-STRIDES ARCOLAB LIMITED-2023SP016506

PATIENT
  Age: 59 Year
  Sex: Female

DRUGS (8)
  1. MYCOPHENOLATE MOFETIL [Suspect]
     Active Substance: MYCOPHENOLATE MOFETIL
     Indication: Chronic cutaneous lupus erythematosus
     Dosage: UNK
     Route: 065
  2. PREDNISOLONE [Suspect]
     Active Substance: PREDNISOLONE
     Indication: Chronic cutaneous lupus erythematosus
     Dosage: UNK
     Route: 065
  3. METHOTREXATE [Suspect]
     Active Substance: METHOTREXATE
     Indication: Chronic cutaneous lupus erythematosus
     Dosage: 20 MILLIGRAM PER WEEK
     Route: 065
  4. AZATHIOPRINE [Suspect]
     Active Substance: AZATHIOPRINE
     Indication: Chronic cutaneous lupus erythematosus
     Dosage: UNK
     Route: 065
  5. EPRATUZUMAB [Suspect]
     Active Substance: EPRATUZUMAB
     Indication: Chronic cutaneous lupus erythematosus
     Dosage: UNK
     Route: 065
  6. HYDROXYCHLOROQUINE [Concomitant]
     Active Substance: HYDROXYCHLOROQUINE
     Indication: Chronic cutaneous lupus erythematosus
     Dosage: 200 MILLIGRAM, BID
     Route: 065
  7. ASPIRIN [Concomitant]
     Active Substance: ASPIRIN
     Indication: Chronic cutaneous lupus erythematosus
     Dosage: 325 MILLIGRAM PER DAY
     Route: 065
  8. HALOBETASOL [Concomitant]
     Active Substance: HALOBETASOL
     Indication: Chronic cutaneous lupus erythematosus
     Dosage: UNK
     Route: 061

REACTIONS (2)
  - Therapy non-responder [Unknown]
  - Off label use [Unknown]
